FAERS Safety Report 7515392-4 (Version None)
Quarter: 2011Q2

REPORT INFORMATION
  Report Type: 
  Country: None (occurrence: None)
  Receive Date: 20110601
  Receipt Date: 20100602
  Transmission Date: 20111010
  Serious: Yes (Other)
  Sender: FDA-Public Use
  Company Number: US-PFIZER INC-2010070055

PATIENT
  Sex: Male
  Weight: 72.56 kg

DRUGS (7)
  1. CHANTIX [Suspect]
     Indication: SMOKING CESSATION THERAPY
     Dosage: 0.5 MG, 1X/DAY
     Route: 048
     Dates: start: 20100512
  2. CHANTIX [Suspect]
     Dosage: 0.5 MG, 2X/DAY
     Route: 048
     Dates: end: 20100519
  3. DILTIAZEM [Concomitant]
     Indication: HYPERTENSION
     Dosage: UNK
  4. LITHIUM [Concomitant]
     Indication: BIPOLAR DISORDER
     Dosage: UNK
  5. SERTRALINE [Concomitant]
     Indication: BIPOLAR DISORDER
     Dosage: UNK
  6. CLOZAPINE [Concomitant]
     Indication: BIPOLAR DISORDER
     Dosage: UNK
  7. LEVOTHYROXINE [Concomitant]
     Indication: THYROID DISORDER
     Dosage: 1 MG, UNK

REACTIONS (1)
  - MUSCLE SPASMS [None]
